FAERS Safety Report 7448216-4 (Version None)
Quarter: 2011Q2

REPORT INFORMATION
  Report Type: 
  Country: None (occurrence: None)
  Receive Date: 20110429
  Receipt Date: 20100428
  Transmission Date: 20111010
  Serious: No
  Sender: FDA-Public Use
  Company Number: US-ASTRAZENECA-2010SE19179

PATIENT
  Age: 46 Year
  Sex: Male
  Weight: 59.9 kg

DRUGS (4)
  1. VALIUM [Concomitant]
  2. NEXIUM [Suspect]
     Route: 048
  3. SEROQUEL [Suspect]
     Route: 048
     Dates: start: 20100201, end: 20100301
  4. PROTONIX [Concomitant]

REACTIONS (3)
  - HALLUCINATION [None]
  - ADVERSE EVENT [None]
  - MEMORY IMPAIRMENT [None]
